FAERS Safety Report 21938013 (Version 1)
Quarter: 2023Q1

REPORT INFORMATION
  Report Type: Report from Study
  Country: US (occurrence: US)
  Receive Date: 20230201
  Receipt Date: 20230201
  Transmission Date: 20230418
  Serious: No
  Sender: FDA-Public Use
  Company Number: US-INCYTE CORPORATION-2021IN004017

PATIENT

DRUGS (3)
  1. PEMIGATINIB [Suspect]
     Active Substance: PEMIGATINIB
     Indication: Cholangiocarcinoma
     Dosage: 13.5 MILLIGRAM (3 TABS QD 14 DAYS ON, 7 DAYS OFF)
     Route: 048
     Dates: start: 20210414
  2. PEMIGATINIB [Suspect]
     Active Substance: PEMIGATINIB
     Dosage: 4.5 MILLIGRAM (2 PO QD FOR 14 DAYS ON AND 7 DAYS OFF)
     Route: 048
     Dates: start: 20210413, end: 20210915
  3. PEMIGATINIB [Suspect]
     Active Substance: PEMIGATINIB
     Dosage: 13.5 MILLIGRAM
     Route: 048
     Dates: start: 20210409

REACTIONS (5)
  - Ageusia [Unknown]
  - Oral pain [Unknown]
  - Fatigue [Unknown]
  - Nausea [Unknown]
  - Hyperphosphataemia [Unknown]
